FAERS Safety Report 15302326 (Version 4)
Quarter: 2019Q2

REPORT INFORMATION
  Report Type: Spontaneous
  Country: US (occurrence: US)
  Receive Date: 20180821
  Receipt Date: 20190530
  Transmission Date: 20190711
  Serious: Yes (Hospitalization)
  Sender: FDA-Public Use
  Company Number: US-STRONGBRIDGE BIOPHARMA-2018-STR-000268

PATIENT
  Age: 48 Year
  Sex: Female

DRUGS (2)
  1. KEVEYIS [Suspect]
     Active Substance: DICHLORPHENAMIDE
     Indication: FAMILIAL PERIODIC PARALYSIS
     Dosage: 2 DF, BID
     Route: 048
     Dates: start: 20180604
  2. KEVEYIS [Suspect]
     Active Substance: DICHLORPHENAMIDE
     Dosage: 2 DF, BID
     Route: 048
     Dates: start: 20180604

REACTIONS (5)
  - Diarrhoea [Not Recovered/Not Resolved]
  - Mastectomy [Unknown]
  - Abdominal pain upper [Not Recovered/Not Resolved]
  - Intentional dose omission [Unknown]
  - Abdominal discomfort [Not Recovered/Not Resolved]

NARRATIVE: CASE EVENT DATE: 20180816
